FAERS Safety Report 17052360 (Version 2)
Quarter: 2019Q4

REPORT INFORMATION
  Report Type: Spontaneous
  Country: CU (occurrence: CU)
  Receive Date: 20191120
  Receipt Date: 20191224
  Transmission Date: 20200122
  Serious: Yes (Other)
  Sender: FDA-Public Use
  Company Number: CU-ROCHE-2478760

PATIENT
  Age: 19 Year
  Sex: Male
  Weight: 55.5 kg

DRUGS (1)
  1. HEMLIBRA [Suspect]
     Active Substance: EMICIZUMAB-KXWH
     Indication: PROPHYLAXIS
     Route: 058
     Dates: start: 20191031, end: 20191103

REACTIONS (2)
  - Nephrolithiasis [Unknown]
  - Haematuria [Recovered/Resolved]

NARRATIVE: CASE EVENT DATE: 20191031
